FAERS Safety Report 13525846 (Version 1)
Quarter: 2017Q2

REPORT INFORMATION
  Report Type: Spontaneous
  Country: US (occurrence: US)
  Receive Date: 20170508
  Receipt Date: 20170508
  Transmission Date: 20170830
  Serious: Yes (Hospitalization)
  Sender: FDA-Public Use
  Company Number: None

PATIENT
  Age: 65 Year
  Sex: Female

DRUGS (1)
  1. AFINITOR [Suspect]
     Active Substance: EVEROLIMUS

REACTIONS (5)
  - Nausea [None]
  - Hypertension [None]
  - Constipation [None]
  - Vomiting [None]
  - Hydrocephalus [None]

NARRATIVE: CASE EVENT DATE: 20170505
